FAERS Safety Report 6671914-7 (Version None)
Quarter: 2010Q2

REPORT INFORMATION
  Report Type: 
  Country: None (occurrence: None)
  Receive Date: 20100407
  Receipt Date: 20100326
  Transmission Date: 20101027
  Serious: Yes (Hospitalization)
  Sender: FDA-Public Use
  Company Number: NL-MEDIMMUNE-MEDI-0011011

PATIENT
  Sex: Male
  Weight: 6 kg

DRUGS (2)
  1. SYNAGIS [Suspect]
     Route: 030
     Dates: start: 20091015, end: 20100225
  2. SYNAGIS [Suspect]
     Route: 030
     Dates: start: 20100325

REACTIONS (2)
  - DYSPNOEA [None]
  - FLUID INTAKE REDUCED [None]
